FAERS Safety Report 21015918 (Version 2)
Quarter: 2023Q1

REPORT INFORMATION
  Report Type: Report from Study
  Country: JP (occurrence: JP)
  Receive Date: 20220628
  Receipt Date: 20230309
  Transmission Date: 20230417
  Serious: Yes (Death, Other)
  Sender: FDA-Public Use
  Company Number: JP-Accord-267581

PATIENT

DRUGS (3)
  1. CARBOPLATIN [Suspect]
     Active Substance: CARBOPLATIN
     Indication: Small cell lung cancer extensive stage
     Dosage: AUC OF 4-5 MIN MG/ML, INTRAVENOUS INJECTION ON DAY 1 OF EACH CYCLE
     Route: 042
  2. ETOPOSIDE [Suspect]
     Active Substance: ETOPOSIDE
     Indication: Small cell lung cancer extensive stage
     Dosage: 80-100MG/M2 BODY SURFACE AREA, INTRAVENOUS INJECTION ON DAYS 1 THROUGH 3 OF EACH CYCLE
     Route: 042
  3. ATEZOLIZUMAB [Suspect]
     Active Substance: ATEZOLIZUMAB
     Indication: Small cell lung cancer extensive stage
     Dosage: FIXED DOSE OF 1200MG, INTRAVENOUS INJECTION ON DAY 1 OF EACH CYCLE
     Route: 042

REACTIONS (2)
  - Pneumonia [Fatal]
  - Lung abscess [Fatal]
